FAERS Safety Report 21509203 (Version 1)
Quarter: 2022Q4

REPORT INFORMATION
  Report Type: Spontaneous
  Country: ES (occurrence: ES)
  Receive Date: 20221026
  Receipt Date: 20221026
  Transmission Date: 20230112
  Serious: Yes (Hospitalization)
  Sender: FDA-Public Use
  Company Number: None

PATIENT
  Age: 83 Year
  Sex: Male
  Weight: 61 kg

DRUGS (3)
  1. RAMIPRIL [Suspect]
     Active Substance: RAMIPRIL
     Indication: Product used for unknown indication
     Dosage: 2.5 MILLIGRAM DAILY; 1-0-0, 28 TABLETS, DURATION : 4 DAYS, FORM STRENGTH : 2.5 MG,
     Dates: start: 20220916, end: 20220919
  2. BISOPROLOL [Suspect]
     Active Substance: BISOPROLOL
     Indication: Atrial flutter
     Dosage: 2.5 MILLIGRAM DAILY; 1 EVERY 24 HOURS, 28 TABLETS, THERAPY END DATE : NASK,FORM STRENGTH : 2.5 MG
     Route: 065
     Dates: start: 20220916
  3. FUROSEMIDE [Suspect]
     Active Substance: FUROSEMIDE
     Indication: Atrial flutter
     Dosage: 30 TABLETS, UNIT DOSE : 40 MG,  THERAPY END DATE : NASK, FREQUENCY TIME : 1 DAY, STRENGTH: 40 MG
     Route: 065
     Dates: start: 20220916

REACTIONS (1)
  - Acute kidney injury [Recovering/Resolving]

NARRATIVE: CASE EVENT DATE: 20220919
